FAERS Safety Report 11984321 (Version 1)
Quarter: 2016Q1

REPORT INFORMATION
  Report Type: Spontaneous
  Country: US (occurrence: US)
  Receive Date: 20160201
  Receipt Date: 20160201
  Transmission Date: 20160526
  Serious: No
  Sender: FDA-Public Use
  Company Number: US-KADMON PHARMACEUTICALS, LLC-KAD201502-000335

PATIENT
  Sex: Male

DRUGS (3)
  1. RIBAVIRIN. [Suspect]
     Active Substance: RIBAVIRIN
     Indication: HEPATITIS C
  2. HARVONI [Concomitant]
     Active Substance: LEDIPASVIR\SOFOSBUVIR
  3. INTERFERON [Suspect]
     Active Substance: INTERFERON
     Indication: HEPATITIS C

REACTIONS (4)
  - Asthenia [Unknown]
  - Pallor [Unknown]
  - Hiccups [Unknown]
  - Anaemia [Unknown]
